FAERS Safety Report 9290078 (Version 1)
Quarter: 2013Q2

REPORT INFORMATION
  Report Type: Spontaneous
  Country: US (occurrence: None)
  Receive Date: 20130510
  Receipt Date: 20130510
  Transmission Date: 20140414
  Serious: Yes (Life-Threatening, Hospitalization, Other)
  Sender: FDA-Public Use
  Company Number: ADR-2013-00776

PATIENT
  Age: 61 Year
  Sex: Female

DRUGS (2)
  1. BACLOFEN [Suspect]
  2. ORAL BACLOFEN [Concomitant]

REACTIONS (1)
  - Tremor [None]
